FAERS Safety Report 9919933 (Version 2)
Quarter: 2014Q1

REPORT INFORMATION
  Report Type: Spontaneous
  Country: US (occurrence: US)
  Receive Date: 20140224
  Receipt Date: 20140319
  Transmission Date: 20141002
  Serious: Yes (Other)
  Sender: FDA-Public Use
  Company Number: US-B.I. PHARMACEUTICALS,INC./RIDGEFIELD-2014-BI-07433BP

PATIENT
  Age: 67 Year
  Sex: Male

DRUGS (19)
  1. SPIRIVA [Suspect]
     Indication: PRODUCT USED FOR UNKNOWN INDICATION
     Dosage: 18 MCG
     Route: 055
     Dates: start: 2010
  2. SPIRIVA [Suspect]
     Dosage: 18 MCG
     Route: 048
     Dates: start: 20140218, end: 20140218
  3. ADVAIR [Concomitant]
     Indication: ASTHMA
     Dosage: 1000 MCG
     Route: 055
  4. FLUTICASONE [Concomitant]
     Dosage: FORMULATION: NASAL SPRAY; DOSE PER APPLICATION; 2 SPRAYS EACH NOSTRIL; DAILY DOSE: 4 SPRAYS
     Route: 045
  5. HYDROCHLOROTHIAZIDE [Concomitant]
     Indication: HYPERTENSION
     Dosage: 12.5 MG
     Route: 048
  6. POLYETHYLENE GLYCOL 3350 [Concomitant]
     Indication: CONSTIPATION
     Route: 048
  7. METOPROLOL [Concomitant]
     Indication: HYPERTENSION
     Dosage: 100 MG
     Route: 048
  8. OMEPRAZOLE [Concomitant]
     Indication: GASTROOESOPHAGEAL REFLUX DISEASE
     Dosage: 40 MG
     Route: 048
  9. PRAVASTATIN [Concomitant]
     Indication: BLOOD CHOLESTEROL INCREASED
     Dosage: 40 MG
     Route: 048
  10. SYMBICORT [Concomitant]
     Dosage: DOSE PER APPLICATION: 160MCG/4.5MCG; DAILY DOSE: 160MCG/4.5MCG
     Route: 055
  11. ASPIRIN [Concomitant]
     Dosage: 81 MG
     Route: 048
  12. LISINOPRIL [Concomitant]
     Dosage: 20 MG
     Route: 048
  13. VESICARE [Concomitant]
     Dosage: 5 MG
     Route: 048
  14. HYDROCODONE 10/325 [Concomitant]
     Indication: BACK PAIN
     Dosage: DOSE PER APPLICATION: 10/325
     Route: 048
  15. AMITRIPTYLINE [Concomitant]
     Indication: DEPRESSION
     Dosage: 50 MG
     Route: 048
  16. ALPRAZOLAM [Concomitant]
     Indication: ANXIETY
     Dosage: 2 MG
     Route: 048
  17. DICLOFENAC [Concomitant]
     Dosage: 200 MG
     Route: 048
  18. GABAPENTIN [Concomitant]
     Dosage: 1200 MG
     Route: 048
  19. LACTALOSE [Concomitant]
     Indication: CONSTIPATION
     Dosage: 40 MG
     Route: 048

REACTIONS (3)
  - Prostate cancer [Not Recovered/Not Resolved]
  - Sleep apnoea syndrome [Recovered/Resolved]
  - Incorrect route of drug administration [Recovered/Resolved]
